FAERS Safety Report 11222259 (Version 5)
Quarter: 2016Q3

REPORT INFORMATION
  Report Type: Spontaneous
  Country: DK (occurrence: DK)
  Receive Date: 20150626
  Receipt Date: 20160825
  Transmission Date: 20161109
  Serious: Yes (Other)
  Sender: FDA-Public Use
  Company Number: DK-TEVA-572223ISR

PATIENT
  Age: 29 Year
  Sex: Male

DRUGS (3)
  1. BLEOMYCIN ^BAXTER^ [Suspect]
     Active Substance: BLEOMYCIN SULFATE
     Indication: TESTIS CANCER
     Route: 042
     Dates: start: 20040706, end: 2004
  2. ETOPOSIDE. [Suspect]
     Active Substance: ETOPOSIDE
     Indication: TESTIS CANCER
     Dosage: 165 MG/M2 DAY 1+2+3, EVERY 3 WEEKS 3 TIMES
     Route: 042
     Dates: start: 20040706
  3. CISPLATIN ^HOSPIRA^ [Suspect]
     Active Substance: CISPLATIN
     Indication: TESTIS CANCER
     Dosage: 50 MG/M2 , DAY 1+2 EVERY 3 WEEKS 3 TIMES.
     Route: 042
     Dates: start: 20040706

REACTIONS (12)
  - Back pain [Not Recovered/Not Resolved]
  - Musculoskeletal discomfort [Unknown]
  - Chronic kidney disease [Not Recovered/Not Resolved]
  - Anaemia [Recovered/Resolved]
  - Dizziness [Not Recovered/Not Resolved]
  - Renal impairment [Not Recovered/Not Resolved]
  - Hypertension [Not Recovered/Not Resolved]
  - Visual impairment [Unknown]
  - Blood creatinine increased [Not Recovered/Not Resolved]
  - Vertigo [Unknown]
  - Fatigue [Not Recovered/Not Resolved]
  - Haemorrhoids [Not Recovered/Not Resolved]

NARRATIVE: CASE EVENT DATE: 20041108
